FAERS Safety Report 7711408-0 (Version None)
Quarter: 2011Q3

REPORT INFORMATION
  Report Type: 
  Country: None (occurrence: None)
  Receive Date: 20110826
  Receipt Date: 20110823
  Transmission Date: 20111222
  Serious: Yes (Hospitalization)
  Sender: FDA-Public Use
  Company Number: US-ABBOTT-11P-163-0848558-00

PATIENT
  Sex: Male
  Weight: 82.628 kg

DRUGS (4)
  1. VITAMIN TAB [Concomitant]
     Indication: VITAMIN SUPPLEMENTATION
  2. ANDROGEL [Suspect]
     Indication: BLOOD TESTOSTERONE DECREASED
     Dosage: FOUR PUMPS A DAY
     Dates: start: 20110725, end: 20110811
  3. UNKNOWN BETA BLOCKER [Suspect]
     Indication: CHEST PAIN
     Dates: start: 20110801, end: 20110801
  4. UNKNOWN CHOLESTEROL MEDICATION [Concomitant]
     Indication: BLOOD CHOLESTEROL INCREASED

REACTIONS (8)
  - FATIGUE [None]
  - LOSS OF CONSCIOUSNESS [None]
  - MOOD ALTERED [None]
  - ANXIETY [None]
  - DIZZINESS [None]
  - ELECTROCARDIOGRAM ABNORMAL [None]
  - CHEST PAIN [None]
  - DEPRESSION [None]
